FAERS Safety Report 5359841-9 (Version None)
Quarter: 2007Q2

REPORT INFORMATION
  Report Type: 
  Country: None (occurrence: None)
  Receive Date: 20070530
  Receipt Date: 20070315
  Transmission Date: 20071010
  Serious: No
  Sender: FDA-Public Use
  Company Number: 2007PV031753

PATIENT
  Age: 54 Year
  Sex: Female
  Weight: 151.0478 kg

DRUGS (4)
  1. BYETTA [Suspect]
     Indication: DIABETES MELLITUS NON-INSULIN-DEPENDENT
     Dosage: 10; 5 MCG;BID;SC
     Route: 058
     Dates: start: 20070210, end: 20070301
  2. BYETTA [Suspect]
     Indication: DIABETES MELLITUS NON-INSULIN-DEPENDENT
     Dosage: 10; 5 MCG;BID;SC
     Route: 058
     Dates: start: 20070301
  3. HUMULIN N [Concomitant]
  4. INSULIN [Concomitant]

REACTIONS (3)
  - BLOOD CREATININE INCREASED [None]
  - EARLY SATIETY [None]
  - WEIGHT DECREASED [None]
